FAERS Safety Report 7223602-6 (Version None)
Quarter: 2011Q1

REPORT INFORMATION
  Report Type: 
  Country: None (occurrence: None)
  Receive Date: 20110112
  Receipt Date: 20100623
  Transmission Date: 20110831
  Serious: No
  Sender: FDA-Public Use
  Company Number: US-ALLERGAN-1008206US

PATIENT
  Sex: Female

DRUGS (7)
  1. CRESTOR [Concomitant]
  2. MULTI-VITAMIN [Concomitant]
  3. RESTASIS [Suspect]
     Indication: DRY EYE
     Dosage: UNK
     Route: 047
     Dates: start: 20091201
  4. BION TEARS [Concomitant]
  5. HUMALOG [Concomitant]
  6. SYNTHROID [Concomitant]
  7. VITAMIN D [Concomitant]

REACTIONS (1)
  - APPLICATION SITE PAIN [None]
